FAERS Safety Report 21818725 (Version 1)
Quarter: 2023Q1

REPORT INFORMATION
  Report Type: Spontaneous
  Country: FR (occurrence: FR)
  Receive Date: 20230104
  Receipt Date: 20230104
  Transmission Date: 20230418
  Serious: Yes (Other)
  Sender: FDA-Public Use
  Company Number: None

PATIENT
  Age: 38 Year
  Sex: Female

DRUGS (1)
  1. BARICITINIB [Suspect]
     Active Substance: BARICITINIB
     Indication: Alopecia areata
     Dosage: UNK UNK, UNKNOWN
     Route: 048
     Dates: start: 202211

REACTIONS (2)
  - Ocular discomfort [Not Recovered/Not Resolved]
  - Retinal vein occlusion [Not Recovered/Not Resolved]

NARRATIVE: CASE EVENT DATE: 20221205
